FAERS Safety Report 6661174-5 (Version None)
Quarter: 2010Q1

REPORT INFORMATION
  Report Type: 
  Country: None (occurrence: None)
  Receive Date: 20100331
  Receipt Date: 20100223
  Transmission Date: 20100710
  Serious: Yes (Life-Threatening)
  Sender: FDA-Public Use
  Company Number: B0461797A

PATIENT
  Sex: Male

DRUGS (18)
  1. EPIVIR [Suspect]
     Indication: HIV INFECTION
     Dosage: 300MG PER DAY
     Route: 048
     Dates: start: 20040515, end: 20080919
  2. NORVIR [Suspect]
     Indication: HIV INFECTION
     Route: 048
     Dates: start: 19991101
  3. EFAVIRENZ [Suspect]
     Indication: HIV INFECTION
     Route: 048
     Dates: start: 20000724, end: 20001002
  4. KALETRA [Suspect]
     Indication: HIV INFECTION
     Route: 048
     Dates: start: 20001225, end: 20040424
  5. VIDEX [Suspect]
     Indication: HIV INFECTION
     Route: 048
     Dates: start: 19941219, end: 20040514
  6. ZERIT [Suspect]
     Route: 048
     Dates: start: 19970825, end: 20011020
  7. CRIXIVAN [Suspect]
     Indication: HIV INFECTION
     Dosage: 800MG PER DAY
     Route: 048
     Dates: start: 20000318, end: 20000524
  8. INVIRASE [Suspect]
     Indication: HIV INFECTION
     Dosage: 800MG PER DAY
     Route: 048
     Dates: start: 19990619, end: 20001224
  9. REYATAZ [Concomitant]
     Indication: HIV INFECTION
     Route: 048
     Dates: start: 20040425
  10. VIREAD [Concomitant]
     Indication: HIV INFECTION
     Route: 048
     Dates: start: 20040425
  11. ANTI-HEMOPHILIC GLOBULIN [Concomitant]
     Route: 042
     Dates: start: 20050401
  12. ZIAGEN [Concomitant]
     Route: 048
     Dates: start: 20000724, end: 20000725
  13. ZIAGEN [Concomitant]
     Indication: HIV INFECTION
     Route: 048
     Dates: start: 20000724, end: 20011027
  14. LEXIVA [Concomitant]
     Indication: HIV INFECTION
     Dosage: 1400MG PER DAY
     Route: 048
     Dates: start: 20080920
  15. TRUVADA [Concomitant]
     Indication: HIV INFECTION
     Route: 048
     Dates: start: 20080920
  16. ISENTRESS [Concomitant]
     Indication: HIV INFECTION
     Dosage: 800MG PER DAY
     Route: 048
     Dates: start: 20080920
  17. NORVASC [Concomitant]
     Indication: HYPERTENSION
     Dosage: 2.5MG PER DAY
     Route: 048
     Dates: start: 20081031, end: 20090105
  18. OLMESARTAN MEDOXOMIL [Concomitant]
     Dosage: 20MG PER DAY
     Route: 048
     Dates: start: 20081031

REACTIONS (6)
  - ASTHENIA [None]
  - CARDIOMEGALY [None]
  - DYSPNOEA [None]
  - PALPITATIONS [None]
  - PULMONARY ARTERY DILATATION [None]
  - PULMONARY HYPERTENSION [None]
